FAERS Safety Report 16534022 (Version 1)
Quarter: 2019Q3

REPORT INFORMATION
  Report Type: Spontaneous
  Country: US (occurrence: US)
  Receive Date: 20190704
  Receipt Date: 20190704
  Transmission Date: 20191004
  Serious: Yes (Hospitalization, Other)
  Sender: FDA-Public Use
  Company Number: US-ROCHE-2348796

PATIENT
  Age: 70 Year
  Sex: Male

DRUGS (1)
  1. XELODA [Suspect]
     Active Substance: CAPECITABINE
     Indication: PRODUCT USED FOR UNKNOWN INDICATION
     Route: 048
     Dates: start: 201905

REACTIONS (3)
  - Dysuria [Unknown]
  - Pain [Unknown]
  - Blood urine present [Unknown]

NARRATIVE: CASE EVENT DATE: 20190702
